FAERS Safety Report 9752272 (Version 2)
Quarter: 2013Q4

REPORT INFORMATION
  Report Type: Spontaneous
  Country: IT (occurrence: None)
  Receive Date: 20131211
  Receipt Date: 20131216
  Transmission Date: 20140711
  Serious: Yes (Hospitalization)
  Sender: FDA-Public Use
  Company Number: 2013AP010183

PATIENT
  Age: 69 Year
  Sex: Male

DRUGS (2)
  1. LEVOFLOXACIN [Suspect]
     Indication: BRONCHITIS
     Route: 048
     Dates: start: 20130913, end: 20130917
  2. DUTASTERIDE (DUTASTERIDE) [Concomitant]

REACTIONS (5)
  - Erythema [None]
  - Eyelid oedema [None]
  - Rash [None]
  - Erythema of eyelid [None]
  - Lip oedema [None]
